FAERS Safety Report 10096747 (Version 1)
Quarter: 2014Q2

REPORT INFORMATION
  Report Type: Spontaneous
  Country: US (occurrence: US)
  Receive Date: 20140422
  Receipt Date: 20140422
  Transmission Date: 20141212
  Serious: Yes (Other)
  Sender: FDA-Public Use
  Company Number: PHHY2014US047005

PATIENT
  Sex: 0

DRUGS (4)
  1. CARBOPLATIN [Suspect]
     Indication: ASTROCYTOMA, LOW GRADE
  2. VINCRISTINE [Suspect]
     Indication: ASTROCYTOMA, LOW GRADE
  3. VINBLASTINE [Suspect]
     Indication: ASTROCYTOMA, LOW GRADE
  4. TEMOZOLOMIDE [Suspect]
     Indication: ASTROCYTOMA, LOW GRADE

REACTIONS (4)
  - Astrocytoma, low grade [Unknown]
  - Malignant neoplasm progression [Unknown]
  - Convulsion [Unknown]
  - Hemiparesis [Recovering/Resolving]
